FAERS Safety Report 23985028 (Version 2)
Quarter: 2024Q2

REPORT INFORMATION
  Report Type: Spontaneous
  Country: BR (occurrence: BR)
  Receive Date: 20240618
  Receipt Date: 20240621
  Transmission Date: 20240716
  Serious: Yes (Hospitalization)
  Sender: FDA-Public Use
  Company Number: BR-002147023-NVSC2024BR125591

PATIENT
  Sex: Female
  Weight: 53 kg

DRUGS (2)
  1. FEMARA [Suspect]
     Active Substance: LETROZOLE
     Indication: Breast cancer
     Dosage: 1 DOSAGE FORM, QD (2.5 WITH 28 TABLETS)
     Route: 065
     Dates: start: 2019
  2. IBRANCE [Suspect]
     Active Substance: PALBOCICLIB
     Indication: Product used for unknown indication
     Dosage: 1 DOSAGE FORM, QD (1 TABLET  PER DAY  FOR 21  DAYS AND  PAUSE OF 7  DAYS)
     Route: 065
     Dates: start: 2019

REACTIONS (2)
  - Malnutrition [Recovering/Resolving]
  - Dehydration [Recovering/Resolving]
